FAERS Safety Report 9310980 (Version 1)
Quarter: 2013Q1

REPORT INFORMATION
  Report Type: Spontaneous
  Country: GB (occurrence: None)
  Receive Date: 20130215
  Receipt Date: 20130215
  Transmission Date: 20140127
  Serious: Yes (Life-Threatening, Hospitalization)
  Sender: FDA-Public Use
  Company Number: GER/UKI/13/0027296

PATIENT
  Age: 74 Year
  Sex: Female

DRUGS (12)
  1. CIPROFLOXACIN (CIPROFLOXACIN) [Suspect]
     Indication: PROPHYLAXIS
     Dates: start: 20110215, end: 20110303
  2. OMEPRAZOLE (OMEPRAZOLE) [Suspect]
     Indication: PRODUCT USED FOR UNKNOWN INDICATION
  3. TAZOCIN (PIP/TAZO) [Suspect]
     Indication: PNEUMONIA
     Route: 042
     Dates: start: 20110211, end: 20110215
  4. ADCAL-D3 (LEKOVIT CA) [Concomitant]
  5. BENZYDAMINE (BENZYDAMINE) [Concomitant]
  6. FOLIC ACID (FOLIC ACID) [Concomitant]
  7. FUROSEMIDE (FUROSEMIDE) [Concomitant]
  8. LACTULOSE (LACTULOSE) [Concomitant]
  9. MULTIVITAMIN (VIGRAN) [Concomitant]
  10. PANCREATIN (PANCREATIN) [Concomitant]
  11. PHYTOMENADIONE (PHYTOMENADIONE) [Concomitant]
  12. SPIRONOLACTONE (SPIRONOLACTONE) [Concomitant]

REACTIONS (2)
  - Clostridium difficile colitis [None]
  - Intestinal dilatation [None]
